FAERS Safety Report 19445288 (Version 1)
Quarter: 2021Q2

REPORT INFORMATION
  Report Type: Spontaneous
  Country: US (occurrence: US)
  Receive Date: 20210621
  Receipt Date: 20210621
  Transmission Date: 20210717
  Serious: No
  Sender: FDA-Public Use
  Company Number: US-SA-2021SA201405

PATIENT
  Age: 52 Year
  Sex: Male

DRUGS (7)
  1. HCTZ [Concomitant]
     Active Substance: HYDROCHLOROTHIAZIDE
  2. DUPIXENT [Suspect]
     Active Substance: DUPILUMAB
     Indication: DERMATITIS ATOPIC
     Route: 058
     Dates: start: 20171031
  3. CYANOCOBALAMIN. [Concomitant]
     Active Substance: CYANOCOBALAMIN
  4. MONTELUKAST [Concomitant]
     Active Substance: MONTELUKAST SODIUM
  5. LEVOCETIRIZINA [LEVOCETIRIZINE] [Concomitant]
  6. ROSUVASTATIN. [Concomitant]
     Active Substance: ROSUVASTATIN
  7. FENOFIBRATE. [Concomitant]
     Active Substance: FENOFIBRATE

REACTIONS (1)
  - Erythema [Not Recovered/Not Resolved]
